FAERS Safety Report 7897780-X (Version None)
Quarter: 2011Q4

REPORT INFORMATION
  Report Type: 
  Country: None (occurrence: None)
  Receive Date: 20111107
  Receipt Date: 20111026
  Transmission Date: 20120403
  Serious: Yes (Other)
  Sender: FDA-Public Use
  Company Number: US-EISAI INC-E7273-00263-SPO-US

PATIENT
  Age: 71 Year
  Sex: Male

DRUGS (1)
  1. TARGRETIN [Suspect]
     Dosage: UP TO 600 MG
     Route: 048
     Dates: start: 20020101

REACTIONS (1)
  - EXOSTOSIS [None]
